FAERS Safety Report 4792985-9 (Version None)
Quarter: 2005Q4

REPORT INFORMATION
  Report Type: 
  Country: None (occurrence: None)
  Receive Date: 20051010
  Receipt Date: 20050927
  Transmission Date: 20060501
  Serious: Yes (Life-Threatening, Hospitalization)
  Sender: FDA-Public Use
  Company Number: DK-MERCK-0509DNK00027

PATIENT
  Age: 67 Year
  Sex: Male
  Weight: 83 kg

DRUGS (1)
  1. VIOXX [Suspect]
     Indication: PAIN
     Route: 048
     Dates: start: 20040921, end: 20040930

REACTIONS (4)
  - ARTERIOSCLEROSIS [None]
  - CAROTID ARTERY DISEASE [None]
  - CEREBRAL INFARCTION [None]
  - HEADACHE [None]
